FAERS Safety Report 6323568-7 (Version None)
Quarter: 2009Q3

REPORT INFORMATION
  Report Type: 
  Country: None (occurrence: None)
  Receive Date: 20090818
  Receipt Date: 20090306
  Transmission Date: 20100115
  Serious: Yes (Hospitalization)
  Sender: FDA-Public Use
  Company Number: MEDI-0008066

PATIENT
  Age: 2 Month
  Sex: Female
  Weight: 4.72 kg

DRUGS (5)
  1. SYNAGIS [Suspect]
     Indication: ANTIVIRAL PROPHYLAXIS
     Dates: start: 20090206, end: 20090306
  2. PENTACEL (HAEMOPHILUS B CONJUGATE VACCINE, DIPHTHERIA, PERTUSSIS, TETA [Suspect]
     Dates: start: 20090218, end: 20090218
  3. PREVAR (PNEUMOCOCCAL CONJUGATE VACCINE) [Suspect]
     Dates: start: 20090118, end: 20090218
  4. HEPATITIS B(HEPATITIS B VACCINE) [Suspect]
     Dates: start: 20090218, end: 20090218
  5. PENTACEL (HAEMOPHILUS B CONJUGATE VACCINE, DIPHTHERIA, PERTUSIS, TETAN [Concomitant]

REACTIONS (1)
  - RESPIRATORY SYNCYTIAL VIRUS INFECTION [None]
